FAERS Safety Report 8035531-9 (Version None)
Quarter: 2012Q1

REPORT INFORMATION
  Report Type: 
  Country: None (occurrence: None)
  Receive Date: 20120111
  Receipt Date: 20120106
  Transmission Date: 20120608
  Serious: Yes (Other)
  Sender: FDA-Public Use
  Company Number: FR-JNJFOC-20120102171

PATIENT
  Sex: Male

DRUGS (8)
  1. PREVISCAN (FLUINDIONE) [Suspect]
     Dosage: 2 TABLETS/DAY
     Route: 048
     Dates: start: 20080301
  2. MALARONE [Suspect]
     Indication: MALARIA PROPHYLAXIS
     Route: 048
     Dates: start: 20110201, end: 20110301
  3. ISENTRESS [Concomitant]
     Indication: HIV INFECTION
     Route: 065
  4. PREVISCAN (FLUINDIONE) [Suspect]
     Indication: EMBOLISM
     Dosage: 0.5 TABLET/DAY
     Route: 048
     Dates: start: 20110301
  5. INTELENCE [Suspect]
     Indication: HIV INFECTION
     Route: 048
     Dates: start: 20110201
  6. ZIAGEN [Concomitant]
     Indication: HIV INFECTION
     Route: 065
  7. LEXOMIL [Concomitant]
     Indication: PRODUCT USED FOR UNKNOWN INDICATION
     Route: 065
  8. MIANSERIN [Concomitant]
     Indication: PRODUCT USED FOR UNKNOWN INDICATION
     Route: 065

REACTIONS (1)
  - MUSCLE HAEMORRHAGE [None]
